FAERS Safety Report 10302853 (Version 3)
Quarter: 2014Q4

REPORT INFORMATION
  Report Type: Report from Study
  Country: FR (occurrence: FR)
  Receive Date: 20140714
  Receipt Date: 20141013
  Transmission Date: 20150528
  Serious: Yes (Other)
  Sender: FDA-Public Use
  Company Number: FR-TEVA-492772ISR

PATIENT
  Age: 37 Year
  Sex: Female

DRUGS (8)
  1. TRISENOX [Suspect]
     Active Substance: ARSENIC TRIOXIDE
     Indication: ACUTE MYELOID LEUKAEMIA
     Route: 042
     Dates: start: 20090420, end: 20090522
  2. METHOTREXATE [Suspect]
     Active Substance: METHOTREXATE
     Indication: ACUTE MYELOID LEUKAEMIA
     Route: 048
     Dates: start: 20090608, end: 20110624
  3. PURINETHOL [Suspect]
     Active Substance: MERCAPTOPURINE
     Indication: ACUTE MYELOID LEUKAEMIA
     Route: 048
     Dates: start: 20090608, end: 20110624
  4. ZAVEDOS [Suspect]
     Active Substance: IDARUBICIN
     Route: 042
     Dates: start: 200901, end: 200905
  5. VESANOID [Suspect]
     Active Substance: TRETINOIN
     Indication: ACUTE MYELOID LEUKAEMIA
     Route: 048
     Dates: start: 20090608, end: 20110624
  6. ACETAMINOPHEN AND CODEINE [Concomitant]
     Active Substance: ACETAMINOPHEN\CODEINE PHOSPHATE
     Indication: ACUTE MYELOID LEUKAEMIA
     Route: 048
     Dates: start: 201307
  7. RISPERDAL [Concomitant]
     Active Substance: RISPERIDONE
  8. ARACYTINE [Suspect]
     Active Substance: CYTARABINE
     Indication: ACUTE MYELOID LEUKAEMIA
     Route: 042
     Dates: start: 200901, end: 200901

REACTIONS (5)
  - Gambling [Unknown]
  - Drug dependence [Unknown]
  - Atrophy [Unknown]
  - Suicide attempt [Unknown]
  - Abnormal behaviour [Not Recovered/Not Resolved]

NARRATIVE: CASE EVENT DATE: 201406
